FAERS Safety Report 6199923 (Version 17)
Quarter: 2014Q1

REPORT INFORMATION
  Report Type: Spontaneous
  Country: US (occurrence: US)
  Receive Date: 20061221
  Receipt Date: 20140101
  Transmission Date: 20141002
  Serious: Yes (Death, Other)
  Sender: FDA-Public Use
  Company Number: PHEH2006US15219

PATIENT
  Age: 55 Year
  Sex: Female

DRUGS (11)
  1. ZOMETA [Suspect]
     Indication: METASTASES TO BONE
     Dosage: 4 MG, QMO
     Route: 042
     Dates: start: 2003
  2. ZOMETA [Suspect]
     Dosage: 4 MG, QMO
     Route: 042
     Dates: start: 20030916
  3. AREDIA [Suspect]
  4. FEMARA [Suspect]
  5. CELEBREX [Concomitant]
  6. CELEXA [Concomitant]
  7. DECADRON [Concomitant]
  8. MS CONTIN [Concomitant]
  9. PACLITAXEL [Concomitant]
  10. CYTOXAN [Concomitant]
  11. ADRIAMYCIN [Concomitant]

REACTIONS (115)
  - Death [Fatal]
  - Osteonecrosis of jaw [Unknown]
  - General physical health deterioration [Unknown]
  - Pain [Unknown]
  - Anxiety [Unknown]
  - Decreased interest [Unknown]
  - Depression [Unknown]
  - Metastases to spine [Unknown]
  - Urinary tract infection [Unknown]
  - Pollakiuria [Unknown]
  - Dysuria [Unknown]
  - Arthralgia [Unknown]
  - Tendonitis [Unknown]
  - Chest pain [Unknown]
  - Fatigue [Unknown]
  - Bronchitis [Unknown]
  - Wheezing [Unknown]
  - Dyspnoea [Unknown]
  - Sinusitis [Unknown]
  - Headache [Unknown]
  - Toothache [Unknown]
  - Pyrexia [Unknown]
  - Cough [Unknown]
  - Mastoiditis [Unknown]
  - Nausea [Unknown]
  - Vomiting [Unknown]
  - Abscess jaw [Unknown]
  - Compression fracture [Unknown]
  - Lymphadenopathy mediastinal [Unknown]
  - Metastases to liver [Not Recovered/Not Resolved]
  - Central nervous system lesion [Unknown]
  - Pleural effusion [Unknown]
  - Atelectasis [Unknown]
  - Abdominal distension [Unknown]
  - Intervertebral disc degeneration [Unknown]
  - Pneumothorax [Not Recovered/Not Resolved]
  - Lymph node calcification [Unknown]
  - Ileus paralytic [Unknown]
  - Deep vein thrombosis [Unknown]
  - Metastases to central nervous system [Unknown]
  - Oral infection [Unknown]
  - Mouth ulceration [Unknown]
  - Decreased appetite [Unknown]
  - Weight decreased [Unknown]
  - Osteoarthritis [Unknown]
  - Cerebral ischaemia [Unknown]
  - Neutropenia [Unknown]
  - Anaemia [Recovered/Resolved]
  - Leukopenia [Unknown]
  - Exposed bone in jaw [Unknown]
  - Primary sequestrum [Unknown]
  - Stomatitis [Unknown]
  - Lumbar spinal stenosis [Unknown]
  - Splenic granuloma [Unknown]
  - Diverticulum [Unknown]
  - Aortic arteriosclerosis [Unknown]
  - Aortic calcification [Unknown]
  - Pulmonary oedema [Unknown]
  - Muscle spasms [Unknown]
  - Otitis media [Unknown]
  - Metastases to bone marrow [Unknown]
  - Embolism venous [Unknown]
  - Agranulocytosis [Unknown]
  - Metastases to lymph nodes [Unknown]
  - Bone lesion [Unknown]
  - Oedema [Unknown]
  - Bone marrow oedema [Unknown]
  - Osteitis [Unknown]
  - Soft tissue infection [Unknown]
  - Pain in jaw [Unknown]
  - Mastication disorder [Unknown]
  - Osteomyelitis [Unknown]
  - Spinal cord compression [Unknown]
  - Osteoporosis [Unknown]
  - Spondylolisthesis [Unknown]
  - Lymphoedema [Unknown]
  - Osteosclerosis [Unknown]
  - Dysthymic disorder [Unknown]
  - Pulmonary mass [Unknown]
  - Rib fracture [Recovering/Resolving]
  - Metastases to pleura [Unknown]
  - Hypercalcaemia [Unknown]
  - Metastases to spleen [Unknown]
  - Pathological fracture [Unknown]
  - Spinal osteoarthritis [Unknown]
  - Exostosis [Unknown]
  - Haematemesis [Unknown]
  - Face oedema [Unknown]
  - Orbital oedema [Unknown]
  - Bladder dysfunction [Unknown]
  - Gingivitis [Unknown]
  - Dental caries [Unknown]
  - Tooth abscess [Unknown]
  - Sepsis [Unknown]
  - Tooth infection [Unknown]
  - Oral disorder [Unknown]
  - Palatal disorder [Recovered/Resolved]
  - Spinal compression fracture [Unknown]
  - Cellulitis [Unknown]
  - Cystic fibrosis lung [Unknown]
  - Purulent discharge [Unknown]
  - Wound [Unknown]
  - Bacterial disease carrier [Unknown]
  - Arachnoid cyst [Unknown]
  - Periodontal disease [Unknown]
  - Fall [Unknown]
  - Memory impairment [Unknown]
  - Gingival bleeding [Unknown]
  - Gingival pain [Unknown]
  - Joint crepitation [Unknown]
  - Loose tooth [Unknown]
  - Adenocarcinoma [Unknown]
  - Aortic disorder [Unknown]
  - Abdominal pain upper [Unknown]
  - Back pain [Unknown]
